FAERS Safety Report 22340076 (Version 2)
Quarter: 2023Q2

REPORT INFORMATION
  Report Type: Spontaneous
  Country: ES (occurrence: ES)
  Receive Date: 20230518
  Receipt Date: 20230529
  Transmission Date: 20230722
  Serious: Yes (Other)
  Sender: FDA-Public Use
  Company Number: ES-TEVA-2023-ES-2887903

PATIENT
  Age: 47 Year
  Sex: Male

DRUGS (2)
  1. ABIRATERONE ACETATE [Suspect]
     Active Substance: ABIRATERONE ACETATE
     Indication: Prostate cancer stage IV
     Dosage: OVER 2 DAYS IN ORDER TO ACHIEVE A TOTAL DOSE OF 1000MG
     Route: 048
  2. ENZALUTAMIDE [Suspect]
     Active Substance: ENZALUTAMIDE
     Indication: Prostate cancer stage IV
     Route: 065

REACTIONS (8)
  - Type IV hypersensitivity reaction [Recovering/Resolving]
  - Drug hypersensitivity [Recovering/Resolving]
  - Rash morbilliform [Recovering/Resolving]
  - Pyrexia [Recovering/Resolving]
  - Erythema [Recovering/Resolving]
  - Eyelid oedema [Recovering/Resolving]
  - Rash maculo-papular [Recovering/Resolving]
  - Oral disorder [Recovering/Resolving]
